FAERS Safety Report 10521046 (Version 1)
Quarter: 2014Q4

REPORT INFORMATION
  Report Type: Spontaneous
  Country: DE (occurrence: DE)
  Receive Date: 20141016
  Receipt Date: 20141016
  Transmission Date: 20150528
  Serious: Yes (Other)
  Sender: FDA-Public Use
  Company Number: DE-ASTRAZENECA-2014SE76548

PATIENT
  Age: 73 Year
  Sex: Female

DRUGS (6)
  1. FOSFOMYCIN [Suspect]
     Active Substance: FOSFOMYCIN
     Indication: BACTERIAL PYELONEPHRITIS
     Route: 065
  2. FOSFOMYCIN [Suspect]
     Active Substance: FOSFOMYCIN
     Indication: CYSTITIS BACTERIAL
     Route: 065
  3. COLISTIMETHATE SODIUM. [Suspect]
     Active Substance: COLISTIMETHATE SODIUM
     Indication: BACTERIAL PYELONEPHRITIS
     Route: 065
  4. MEROPENEM. [Suspect]
     Active Substance: MEROPENEM
     Indication: BACTERIAL PYELONEPHRITIS
     Route: 042
  5. MEROPENEM. [Suspect]
     Active Substance: MEROPENEM
     Indication: CYSTITIS BACTERIAL
     Route: 042
  6. COLISTIMETHATE SODIUM. [Suspect]
     Active Substance: COLISTIMETHATE SODIUM
     Indication: CYSTITIS BACTERIAL
     Route: 065

REACTIONS (1)
  - Polyneuropathy chronic [Unknown]
